FAERS Safety Report 22264939 (Version 1)
Quarter: 2023Q2

REPORT INFORMATION
  Report Type: Spontaneous
  Country: US (occurrence: US)
  Receive Date: 20230428
  Receipt Date: 20230428
  Transmission Date: 20230721
  Serious: No
  Sender: FDA-Public Use
  Company Number: US-BAXTER-2023BAX019783

PATIENT
  Age: 93 Year

DRUGS (1)
  1. HEPARIN SODIUM [Suspect]
     Active Substance: HEPARIN SODIUM
     Dosage: USING SPECTRUM INFUSION PUMP
     Route: 042

REACTIONS (3)
  - Anticoagulation drug level below therapeutic [Recovered/Resolved]
  - Device use error [Unknown]
  - Device alarm issue [Unknown]

NARRATIVE: CASE EVENT DATE: 20230204
